FAERS Safety Report 4829313-6 (Version None)
Quarter: 2005Q4

REPORT INFORMATION
  Report Type: 
  Country: None (occurrence: None)
  Receive Date: 20051028
  Receipt Date: 20050728
  Transmission Date: 20060501
  Serious: Yes (Hospitalization, Other)
  Sender: FDA-Public Use
  Company Number: USA0507104052

PATIENT
  Age: 75 Year
  Sex: Female

DRUGS (7)
  1. SYMBYAX [Suspect]
     Indication: BIPOLAR DISORDER
  2. ABILIFY [Concomitant]
  3. CARDIZEM /00489701/(DILTIAZEM) [Concomitant]
  4. COUMADIN [Concomitant]
  5. ELAVIL [Concomitant]
  6. LASIX [Concomitant]
  7. ESTROGEN NOS [Concomitant]

REACTIONS (1)
  - CARDIAC FAILURE CONGESTIVE [None]
